FAERS Safety Report 8725334 (Version 2)
Quarter: 2012Q4

REPORT INFORMATION
  Report Type: 
  Country: US (occurrence: US)
  Receive Date: 20120815
  Receipt Date: 20120910
  Transmission Date: 20130627
  Serious: Yes (Hospitalization, Other)
  Sender: FDA-Public Use
  Company Number: US-ACTELION-A-US2011-48069

PATIENT
  Age: 37 Year
  Sex: Female

DRUGS (6)
  1. TRACLEER [Suspect]
     Indication: PULMONARY ARTERIAL HYPERTENSION
     Dosage: UNK
     Route: 048
     Dates: start: 20090424
  2. TRACLEER [Suspect]
     Route: 048
  3. REVATIO [Concomitant]
  4. COUMADIN [Concomitant]
  5. DIURETICS [Concomitant]
  6. TYVASO [Concomitant]

REACTIONS (6)
  - Blood creatinine abnormal [Unknown]
  - Fluid overload [Unknown]
  - Oedema [Unknown]
  - Chest discomfort [Unknown]
  - Dyspnoea [Unknown]
  - Pulmonary arterial hypertension [Recovering/Resolving]
